FAERS Safety Report 5385098-9 (Version None)
Quarter: 2007Q3

REPORT INFORMATION
  Report Type: 
  Country: None (occurrence: None)
  Receive Date: 20070705
  Receipt Date: 20070705
  Transmission Date: 20080115
  Serious: No
  Sender: FDA-Public Use
  Company Number: None

PATIENT
  Age: 36 Year
  Sex: Female
  Weight: 104.3273 kg

DRUGS (1)
  1. BYETTA [Suspect]
     Indication: TYPE 2 DIABETES MELLITUS
     Dosage: USE 1 INJECTION UNDER THE SKIN TWICE A DAY
     Route: 058
     Dates: start: 20061001

REACTIONS (2)
  - DEVICE FAILURE [None]
  - THERAPEUTIC PRODUCT CONTAMINATION [None]
